FAERS Safety Report 19238160 (Version 3)
Quarter: 2021Q4

REPORT INFORMATION
  Report Type: Spontaneous
  Country: US (occurrence: US)
  Receive Date: 20210510
  Receipt Date: 20211025
  Transmission Date: 20220303
  Serious: No
  Sender: FDA-Public Use
  Company Number: US-PFIZER INC-2021476356

PATIENT
  Age: 83 Year
  Weight: 47.62 kg

DRUGS (1)
  1. PREMARIN [Suspect]
     Active Substance: ESTROGENS, CONJUGATED
     Dosage: TAKE 3 A WEEK

REACTIONS (2)
  - Night sweats [Unknown]
  - Hot flush [Unknown]
